FAERS Safety Report 8962928 (Version 2)
Quarter: 2013Q1

REPORT INFORMATION
  Report Type: Spontaneous
  Country: JP (occurrence: None)
  Receive Date: 20121205
  Receipt Date: 20121218
  Transmission Date: 20140127
  Serious: Yes (Hospitalization)
  Sender: FDA-Public Use
  Company Number: TPA2012A09445

PATIENT
  Age: 32 Year
  Sex: Female

DRUGS (3)
  1. FEBURIC [Suspect]
     Indication: HYPERURICAEMIA
     Route: 048
     Dates: start: 20121031, end: 20121106
  2. CEFZON [Suspect]
     Indication: CELLULITIS
     Route: 048
     Dates: start: 20121009, end: 20121107
  3. SLOW-K (POTASSIUM CHLORIDE) [Concomitant]

REACTIONS (3)
  - Renal disorder [None]
  - Renal tubular disorder [None]
  - Blood creatinine increased [None]
